FAERS Safety Report 5630599-9 (Version None)
Quarter: 2008Q1

REPORT INFORMATION
  Report Type: 
  Country: None (occurrence: None)
  Receive Date: 20080219
  Receipt Date: 20080214
  Transmission Date: 20080703
  Serious: Yes (Other)
  Sender: FDA-Public Use
  Company Number: DE-BRISTOL-MYERS SQUIBB COMPANY-14079644

PATIENT

DRUGS (5)
  1. STAVUDINE [Suspect]
     Route: 064
  2. LAMIVUDINE [Suspect]
     Route: 064
  3. NEVIRAPINE [Suspect]
     Route: 064
  4. COMBIVIR [Suspect]
     Route: 064
  5. NELFINAVIR [Suspect]
     Route: 064

REACTIONS (2)
  - HYPOSPADIAS [None]
  - PREGNANCY [None]
